FAERS Safety Report 5103260-7 (Version None)
Quarter: 2006Q3

REPORT INFORMATION
  Report Type: 
  Country: None (occurrence: None)
  Receive Date: 20060913
  Receipt Date: 20060905
  Transmission Date: 20061208
  Serious: Yes (Other)
  Sender: FDA-Public Use
  Company Number: 2006UW17496

PATIENT
  Age: 80 Year
  Sex: Male

DRUGS (2)
  1. ZOLADEX [Suspect]
     Indication: PROSTATE CANCER
     Route: 058
     Dates: start: 19970101
  2. CASODEX [Concomitant]
     Indication: PROSTATE CANCER
     Route: 048
     Dates: start: 19970101, end: 20050201

REACTIONS (4)
  - ATROPHY [None]
  - CEREBRAL ATROPHY [None]
  - MUSCULOSKELETAL CHEST PAIN [None]
  - SPINAL MUSCULAR ATROPHY [None]
